FAERS Safety Report 12354352 (Version 1)
Quarter: 2016Q2

REPORT INFORMATION
  Report Type: Spontaneous
  Country: US (occurrence: US)
  Receive Date: 20160511
  Receipt Date: 20160511
  Transmission Date: 20160815
  Serious: No
  Sender: FDA-Public Use
  Company Number: US-BAYER-2016-090433

PATIENT
  Age: 76 Year
  Sex: Female
  Weight: 81.63 kg

DRUGS (2)
  1. GLIMEPIRIDE. [Concomitant]
     Active Substance: GLIMEPIRIDE
  2. CLARITIN REDITABS [Suspect]
     Active Substance: LORATADINE
     Indication: SEASONAL ALLERGY
     Dosage: 1 DF, QD
     Route: 048
     Dates: start: 201604, end: 20160509

REACTIONS (1)
  - Drug ineffective [None]

NARRATIVE: CASE EVENT DATE: 2016
